FAERS Safety Report 25737929 (Version 1)
Quarter: 2025Q3

REPORT INFORMATION
  Report Type: Spontaneous
  Country: JP (occurrence: None)
  Receive Date: 20250829
  Receipt Date: 20250829
  Transmission Date: 20251020
  Serious: Yes (Hospitalization)
  Sender: CRYSTAL PHARMA
  Company Number: JP-Crystal-000003

PATIENT
  Age: 84 Year
  Sex: Male

DRUGS (7)
  1. SACUBITRIL\VALSARTAN [Suspect]
     Active Substance: SACUBITRIL\VALSARTAN
     Indication: Hypertension
  2. METFORMIN [Concomitant]
     Active Substance: METFORMIN HYDROCHLORIDE
     Indication: Type 2 diabetes mellitus
  3. LINAGLIPTIN [Concomitant]
     Active Substance: LINAGLIPTIN
     Indication: Type 2 diabetes mellitus
  4. NIFEDIPINE [Concomitant]
     Active Substance: NIFEDIPINE
     Indication: Hypertension
  5. CARVEDILOL [Concomitant]
     Active Substance: CARVEDILOL
     Indication: Hypertension
  6. IMEGLIMIN [Concomitant]
     Active Substance: IMEGLIMIN
  7. IMEGLIMIN [Concomitant]
     Active Substance: IMEGLIMIN

REACTIONS (2)
  - Laboratory test abnormal [Recovering/Resolving]
  - Off label use [Unknown]
